FAERS Safety Report 4974922-7 (Version None)
Quarter: 2006Q2

REPORT INFORMATION
  Report Type: 
  Country: None (occurrence: None)
  Receive Date: 20060418
  Receipt Date: 20060407
  Transmission Date: 20061013
  Serious: Yes (Hospitalization, Other)
  Sender: FDA-Public Use
  Company Number: PHBS2006CH05163

PATIENT
  Age: 63 Year
  Sex: Male

DRUGS (6)
  1. TEGRETOL [Suspect]
     Indication: PAIN
     Dosage: 300 MG/DAY
     Route: 065
     Dates: start: 20060120, end: 20060201
  2. DURAGESIC-100 [Suspect]
     Indication: PAIN
     Dosage: 75 MCG/H/3
     Route: 062
     Dates: start: 20060116, end: 20060127
  3. DURAGESIC-100 [Suspect]
     Route: 062
     Dates: start: 20060101
  4. DURAGESIC-100 [Suspect]
     Dosage: 200 MCG/H/3
     Route: 062
     Dates: start: 20060127, end: 20060127
  5. MEFENACID [Suspect]
     Indication: PAIN
     Dosage: 1500 MG/DAY
     Route: 065
  6. DEXAMETHASONE [Suspect]
     Indication: PAIN
     Dosage: 12 MG/DAY
     Route: 065

REACTIONS (5)
  - ASTHENIA [None]
  - CONFUSIONAL STATE [None]
  - DRUG INEFFECTIVE [None]
  - DRUG INTERACTION POTENTIATION [None]
  - DRUG TOXICITY [None]
